FAERS Safety Report 8088562-7 (Version None)
Quarter: 2012Q1

REPORT INFORMATION
  Report Type: 
  Country: None (occurrence: None)
  Receive Date: 20120128
  Receipt Date: 20110406
  Transmission Date: 20120608
  Serious: Yes (Hospitalization, Other)
  Sender: FDA-Public Use
  Company Number: US-ABBOTT-11P-163-0717392-00

PATIENT
  Sex: Female
  Weight: 49.032 kg

DRUGS (2)
  1. HUMIRA [Suspect]
     Route: 058
     Dates: start: 20081201, end: 20100601
  2. HUMIRA [Suspect]
     Indication: CROHN'S DISEASE
     Route: 058
     Dates: start: 20080901, end: 20081212

REACTIONS (3)
  - SKIN CANCER [None]
  - CERVIX CARCINOMA [None]
  - DRUG INEFFECTIVE [None]
